FAERS Safety Report 5423172-9 (Version None)
Quarter: 2007Q3

REPORT INFORMATION
  Report Type: 
  Country: None (occurrence: None)
  Receive Date: 20070730
  Receipt Date: 20070123
  Transmission Date: 20080115
  Serious: Yes (Other)
  Sender: FDA-Public Use
  Company Number: 200616472BWH

PATIENT
  Age: 42 Year
  Sex: Female

DRUGS (2)
  1. AVELOX [Suspect]
     Indication: BRONCHITIS
     Dosage: QD, ORAL
     Route: 048
     Dates: start: 20061211, end: 20061212
  2. PREDNISONE TAB [Concomitant]

REACTIONS (2)
  - SWELLING [None]
  - URTICARIA [None]
